FAERS Safety Report 6274576-6 (Version None)
Quarter: 2009Q3

REPORT INFORMATION
  Report Type: 
  Country: None (occurrence: None)
  Receive Date: 20090720
  Receipt Date: 20090711
  Transmission Date: 20100115
  Serious: Yes (Hospitalization, Other)
  Sender: FDA-Public Use
  Company Number: US-AVENTIS-200916179US

PATIENT
  Age: 69 Year
  Sex: Female

DRUGS (3)
  1. LANTUS [Suspect]
     Route: 058
     Dates: start: 20071001
  2. OPTICLIK GREY [Suspect]
     Dates: start: 20090701
  3. HUMALOG [Concomitant]
     Dosage: DOSE: UNK
     Dates: end: 20090601

REACTIONS (3)
  - BLOOD GLUCOSE INCREASED [None]
  - STAPHYLOCOCCAL INFECTION [None]
  - SURGERY [None]
